FAERS Safety Report 10796307 (Version 1)
Quarter: 2015Q1

REPORT INFORMATION
  Report Type: Spontaneous
  Country: US (occurrence: US)
  Receive Date: 20150216
  Receipt Date: 20150216
  Transmission Date: 20150721
  Serious: No
  Sender: FDA-Public Use
  Company Number: US-ASTRAZENECA-2015SE12813

PATIENT
  Age: 588 Month
  Sex: Female
  Weight: 63.5 kg

DRUGS (3)
  1. SYMBICORT [Suspect]
     Active Substance: BUDESONIDE\FORMOTEROL FUMARATE DIHYDRATE
     Indication: OBSTRUCTION
     Dosage: 80 4.5MCG TWO TIMES A DAY
     Route: 055
     Dates: start: 201412, end: 201412
  2. SYMBICORT [Suspect]
     Active Substance: BUDESONIDE\FORMOTEROL FUMARATE DIHYDRATE
     Indication: PNEUMONIA
     Dosage: 80 4.5MCG TWO TIMES A DAY
     Route: 055
     Dates: start: 201412, end: 201412
  3. ALBUTEROL. [Concomitant]
     Active Substance: ALBUTEROL
     Indication: EMERGENCY CARE
     Route: 055
     Dates: start: 201408

REACTIONS (5)
  - Malaise [Recovered/Resolved]
  - Dysphonia [Recovered/Resolved]
  - Insomnia [Recovered/Resolved]
  - Nausea [Recovered/Resolved]
  - Nightmare [Recovered/Resolved]

NARRATIVE: CASE EVENT DATE: 201412
